FAERS Safety Report 7707460-9 (Version None)
Quarter: 2011Q3

REPORT INFORMATION
  Report Type: 
  Country: None (occurrence: None)
  Receive Date: 20110824
  Receipt Date: 20110815
  Transmission Date: 20111222
  Serious: Yes (Hospitalization, Other)
  Sender: FDA-Public Use
  Company Number: US-ASTRAZENECA-2010SE23100

PATIENT
  Age: 54 Year
  Sex: Female
  Weight: 62.6 kg

DRUGS (2)
  1. NEXIUM [Suspect]
     Route: 048
  2. OXYCODONE HCL [Suspect]
     Route: 065
     Dates: end: 20100516

REACTIONS (5)
  - NERVE INJURY [None]
  - VOMITING [None]
  - DRUG DOSE OMISSION [None]
  - SPINAL FUSION SURGERY [None]
  - NAUSEA [None]
